FAERS Safety Report 9772116 (Version 10)
Quarter: 2018Q3

REPORT INFORMATION
  Report Type: Report from Study
  Country: CA (occurrence: CA)
  Receive Date: 20131219
  Receipt Date: 20180914
  Transmission Date: 20181010
  Serious: Yes (Other)
  Sender: FDA-Public Use
  Company Number: CA-BEH-2013039457

PATIENT
  Age: 35 Year
  Sex: Male
  Weight: 77 kg

DRUGS (3)
  1. HIZENTRA [Suspect]
     Active Substance: HUMAN IMMUNOGLOBULIN G
     Indication: MULTIFOCAL MOTOR NEUROPATHY
     Dosage: DOSE DIVIDED BI?WEEKLY
     Route: 058
     Dates: start: 20130830, end: 20131206
  2. HIZENTRA [Suspect]
     Active Substance: HUMAN IMMUNOGLOBULIN G
     Dosage: DOSE DIVIDED BI?WEEKLY
     Route: 058
     Dates: start: 20130830, end: 20131206
  3. HIZENTRA [Suspect]
     Active Substance: HUMAN IMMUNOGLOBULIN G
     Dosage: DOSE DIVIDED BI?WEEKLY
     Route: 058
     Dates: start: 20130830, end: 20131206

REACTIONS (12)
  - Gamma-glutamyltransferase increased [Recovered/Resolved]
  - Injection site erythema [Recovered/Resolved]
  - Malaise [Unknown]
  - Contusion [Unknown]
  - Blood pressure increased [Unknown]
  - Pain [Unknown]
  - Pyrexia [Unknown]
  - Palpitations [Unknown]
  - Injection site swelling [Unknown]
  - Hepatic enzyme increased [Recovered/Resolved]
  - Blood creatine phosphokinase increased [Recovered/Resolved]
  - Skin induration [Unknown]

NARRATIVE: CASE EVENT DATE: 201311
